FAERS Safety Report 4773300-3 (Version None)
Quarter: 2005Q3

REPORT INFORMATION
  Report Type: 
  Country: None (occurrence: None)
  Receive Date: 20050916
  Receipt Date: 20050831
  Transmission Date: 20060218
  Serious: Yes (Death, Hospitalization)
  Sender: FDA-Public Use
  Company Number: USA0508106383

PATIENT
  Age: 6 Year
  Sex: Male
  Weight: 20 kg

DRUGS (3)
  1. STRATTERA [Suspect]
     Indication: ATTENTION DEFICIT/HYPERACTIVITY DISORDER
     Dosage: 18 MG DAY
  2. RISPERDAL [Concomitant]
  3. CLONIDINE [Concomitant]

REACTIONS (3)
  - CARDIAC ARREST [None]
  - CARDIAC VALVE DISEASE [None]
  - CONGESTIVE CARDIOMYOPATHY [None]
